FAERS Safety Report 5010482-2 (Version None)
Quarter: 2006Q2

REPORT INFORMATION
  Report Type: 
  Country: None (occurrence: None)
  Receive Date: 20060525
  Receipt Date: 20050422
  Transmission Date: 20061013
  Serious: No
  Sender: FDA-Public Use
  Company Number: US-GLAXOSMITHKLINE-A0555377A

PATIENT
  Age: 20 Month
  Sex: Male
  Weight: 14.5 kg

DRUGS (3)
  1. BACTROBAN [Suspect]
     Indication: ECZEMA
     Route: 061
     Dates: start: 20050208, end: 20050208
  2. HYDROCORTISONE [Concomitant]
     Indication: ECZEMA
     Route: 061
     Dates: start: 20041101
  3. PROTOPIC [Concomitant]
     Indication: ECZEMA
     Route: 061
     Dates: start: 20041101

REACTIONS (5)
  - ERYTHEMA [None]
  - HYPERSENSITIVITY [None]
  - RASH [None]
  - SWELLING [None]
  - SWELLING FACE [None]
